FAERS Safety Report 8430354-0 (Version None)
Quarter: 2012Q2

REPORT INFORMATION
  Report Type: 
  Country: None (occurrence: None)
  Receive Date: 20120612
  Receipt Date: 20120607
  Transmission Date: 20120825
  Serious: Yes (Hospitalization, Other)
  Sender: FDA-Public Use
  Company Number: US-BAYER-2012-050889

PATIENT
  Age: 72 Year
  Sex: Male

DRUGS (10)
  1. FUROSEMIDE [Concomitant]
     Dosage: 20 MG, BID
  2. TRAMADOL HCL [Concomitant]
     Indication: PAIN IN EXTREMITY
     Dosage: 50 MG, BID PRN
  3. NADOLOL [Concomitant]
     Dosage: 20 MG, UNK
     Route: 048
  4. LISINOPRIL [Concomitant]
     Dosage: 40 MG, BID
     Route: 048
  5. NEXAVAR [Suspect]
     Indication: HEPATIC NEOPLASM MALIGNANT
     Dosage: 400 MG, BID
     Dates: start: 20120401, end: 20120521
  6. LACTULOSE [Concomitant]
     Dosage: 10MG/ 15ML
  7. CORGARD [Concomitant]
     Dosage: 20 MG, QD
  8. ONDANSETRON HYDROCHLORIDE [Concomitant]
     Indication: NAUSEA
     Dosage: 8 MG, PRN
  9. COMBIVENT [Concomitant]
     Dosage: 18-103 MCG/ACT TID
  10. SPIRONOLACTONE [Concomitant]
     Dosage: 50 MG, UNK

REACTIONS (12)
  - HEPATIC FAILURE [None]
  - SEPSIS [None]
  - HIP FRACTURE [None]
  - SKIN ULCER [None]
  - ASTHENIA [None]
  - FATIGUE [None]
  - FLUID RETENTION [None]
  - PNEUMONIA [None]
  - FALL [None]
  - RENAL IMPAIRMENT [None]
  - CONFUSIONAL STATE [None]
  - DEHYDRATION [None]
